FAERS Safety Report 12366248 (Version 1)
Quarter: 2016Q2

REPORT INFORMATION
  Report Type: Report from Study
  Country: US (occurrence: US)
  Receive Date: 20160513
  Receipt Date: 20160513
  Transmission Date: 20160815
  Serious: Yes (Other)
  Sender: FDA-Public Use
  Company Number: US-AMGEN-USASL2016060289

PATIENT
  Age: 64 Year
  Sex: Female

DRUGS (1)
  1. ENBREL [Suspect]
     Active Substance: ETANERCEPT
     Indication: PRODUCT USED FOR UNKNOWN INDICATION
     Dosage: UNK
     Route: 065

REACTIONS (7)
  - Bunion operation [Unknown]
  - Shoulder operation [Unknown]
  - Arthroscopy [Unknown]
  - Carpal tunnel decompression [Unknown]
  - Foot operation [Unknown]
  - Knee arthroplasty [Unknown]
  - Elbow operation [Unknown]
